FAERS Safety Report 4411417-3 (Version None)
Quarter: 2004Q2

REPORT INFORMATION
  Report Type: 
  Country: None (occurrence: None)
  Receive Date: 20040630
  Receipt Date: 20040524
  Transmission Date: 20050107
  Serious: No
  Sender: FDA-Public Use
  Company Number: 04P-163-0261811-00

PATIENT
  Age: 56 Year
  Sex: Female
  Weight: 57.1532 kg

DRUGS (8)
  1. HUMIRA [Suspect]
     Indication: RHEUMATOID ARTHRITIS
     Dosage: 40 MG, 1 IN 1 WK, SUBCUTANEOUS
     Route: 058
     Dates: start: 20040401
  2. PREDNISONE [Concomitant]
  3. ESOMEPRAZOLE [Concomitant]
  4. ATORVASTATIN CALCIUM [Concomitant]
  5. CELECOXIB [Concomitant]
  6. NIFEDIPINE [Concomitant]
  7. WARFARIN SODIUM [Concomitant]
  8. IMIPARIN [Concomitant]

REACTIONS (6)
  - BURNING SENSATION [None]
  - HAEMORRHAGE [None]
  - HERPES SIMPLEX [None]
  - SECRETION DISCHARGE [None]
  - SKIN NODULE [None]
  - SWELLING [None]
